FAERS Safety Report 5593578-6 (Version None)
Quarter: 2008Q1

REPORT INFORMATION
  Report Type: 
  Country: None (occurrence: None)
  Receive Date: 20080116
  Receipt Date: 20080110
  Transmission Date: 20080703
  Serious: Yes (Hospitalization)
  Sender: FDA-Public Use
  Company Number: JP-BRISTOL-MYERS SQUIBB COMPANY-14026728

PATIENT
  Age: 66 Year
  Sex: Female
  Weight: 39 kg

DRUGS (16)
  1. ABATACEPT [Suspect]
     Indication: RHEUMATOID ARTHRITIS
     Route: 041
     Dates: start: 20070724, end: 20071113
  2. PREDNISOLONE [Concomitant]
     Indication: RHEUMATOID ARTHRITIS
     Dosage: 6 MG - UNKNOWN DATE TO 11-DEC-2007.
     Route: 048
     Dates: start: 20071211
  3. KETOPROFEN [Concomitant]
     Indication: RHEUMATOID ARTHRITIS
     Dosage: ALSO MOHRUS TAPE L ADMINISTERED; PRN; ROUTE - TOPICAL; ONGOING.
     Route: 061
     Dates: start: 20070612
  4. LOXONIN [Concomitant]
     Indication: RHEUMATOID ARTHRITIS
     Route: 048
  5. DEPAS [Concomitant]
     Indication: INSOMNIA
     Route: 048
  6. PLETAL [Concomitant]
     Indication: CEREBRAL INFARCTION
     Route: 048
  7. NU-LOTAN [Concomitant]
     Indication: HYPERTENSION
     Route: 048
  8. FERROMIA [Concomitant]
     Indication: IRON DEFICIENCY ANAEMIA
     Route: 048
  9. CYANOCOBALAMIN [Concomitant]
     Indication: NEUROPATHY PERIPHERAL
  10. MYSLEE [Concomitant]
     Indication: INSOMNIA
     Route: 048
  11. FOSAMAC [Concomitant]
     Indication: OSTEOPOROSIS
     Route: 048
     Dates: start: 20070612
  12. SELBEX [Concomitant]
     Indication: PROPHYLAXIS
     Route: 048
     Dates: start: 20070612
  13. SANCOBA [Concomitant]
     Indication: ASTHENOPIA
  14. OMEPRAL [Concomitant]
     Indication: PROPHYLAXIS
     Route: 048
  15. GASTER D [Concomitant]
     Indication: PROPHYLAXIS
     Route: 048
  16. BONALON [Concomitant]
     Indication: OSTEOPOROSIS
     Route: 048
     Dates: start: 20071217

REACTIONS (1)
  - NEUROPATHY PERIPHERAL [None]
